FAERS Safety Report 7646693-7 (Version None)
Quarter: 2011Q3

REPORT INFORMATION
  Report Type: 
  Country: None (occurrence: None)
  Receive Date: 20110801
  Receipt Date: 20110718
  Transmission Date: 20111222
  Serious: Yes (Death, Hospitalization, Other)
  Sender: FDA-Public Use
  Company Number: TW-CELGENEUS-153-C5013-11033377

PATIENT
  Sex: Female
  Weight: 42.5 kg

DRUGS (44)
  1. LACTULOSE [Concomitant]
     Dosage: 40 MILLILITER
     Route: 048
     Dates: start: 20110422, end: 20110427
  2. DIPHENHYDRAMINE HCL [Concomitant]
     Route: 041
     Dates: start: 20110421, end: 20110421
  3. NEUPOGEN [Concomitant]
     Route: 065
     Dates: start: 20110301, end: 20110315
  4. TOPAAL [Concomitant]
     Dosage: 400 MILLIGRAM
     Route: 048
  5. DIPHENHYDRAMINE HCL [Concomitant]
     Route: 041
     Dates: start: 20110416, end: 20110417
  6. DIPHENHYDRAMINE HCL [Concomitant]
     Route: 041
     Dates: start: 20110426, end: 20110428
  7. CEFAZOLIN SODIUM [Concomitant]
     Dosage: 3000 MILLIGRAM
     Route: 041
     Dates: start: 20110407, end: 20110407
  8. FUROSEMIDE [Concomitant]
     Dosage: 60 MILLIGRAM
     Route: 041
     Dates: start: 20110413
  9. VELCADE [Concomitant]
     Route: 065
     Dates: start: 20100617
  10. MAXIPIME [Concomitant]
     Route: 065
  11. DIPHENHYDRAMINE HCL [Concomitant]
     Route: 041
     Dates: start: 20110407, end: 20110408
  12. POTASSIUM CHLORIDE [Concomitant]
     Route: 048
     Dates: start: 20110407, end: 20110409
  13. CEFAZOLIN SODIUM [Concomitant]
     Dosage: 2000 MILLIGRAM
     Route: 041
     Dates: start: 20110407
  14. TRAMADOL HCL [Concomitant]
     Dosage: 35.5/ 325 MG
     Route: 048
     Dates: start: 20110411, end: 20110413
  15. TRAMADOL HCL [Concomitant]
     Dosage: 35.5/ 325 MG
     Route: 048
     Dates: start: 20110415, end: 20110416
  16. TRAMADOL HCL [Concomitant]
     Dosage: 35.5/ 325 MG
     Route: 048
     Dates: start: 20110415
  17. TEICOPLANIN [Concomitant]
     Route: 065
     Dates: start: 20110415, end: 20110416
  18. TEICOPLANIN [Concomitant]
     Dosage: 800 MILLIGRAM
     Route: 065
     Dates: start: 20110413, end: 20110414
  19. INDERAL [Concomitant]
     Dosage: 20 MILLIGRAM
     Route: 048
     Dates: start: 20110424, end: 20110424
  20. DIPHENHYDRAMINE HCL [Concomitant]
     Route: 041
     Dates: start: 20110425, end: 20110426
  21. TRANEXAMIC ACID [Concomitant]
     Route: 041
     Dates: start: 20110408, end: 20110409
  22. TRAMADOL HCL [Concomitant]
     Route: 048
     Dates: start: 20110407, end: 20110408
  23. FUROSEMIDE [Concomitant]
     Dosage: 40 MILLIGRAM
     Route: 048
     Dates: start: 20110422, end: 20110426
  24. VELCADE [Concomitant]
     Indication: MULTIPLE MYELOMA
     Route: 065
     Dates: start: 20101125
  25. REVLIMID [Suspect]
     Indication: MULTIPLE MYELOMA
     Dosage: 10 MILLIGRAM
     Route: 048
     Dates: start: 20110308, end: 20110428
  26. WHOLE BLOOD [Concomitant]
     Route: 041
  27. GASCON [Concomitant]
     Route: 048
  28. OXETHAZAINE [Concomitant]
     Route: 048
     Dates: start: 20110425, end: 20110426
  29. MORPHINE [Concomitant]
     Indication: ABDOMINAL PAIN
     Dosage: 12 MILLIGRAM
     Route: 048
     Dates: start: 20110416
  30. MORPHINE [Concomitant]
     Indication: BREAKTHROUGH PAIN
     Dosage: 24 MILLIGRAM
     Route: 058
     Dates: start: 20110421, end: 20110428
  31. MORPHINE [Concomitant]
     Dosage: 30 MILLILITER
     Route: 048
  32. VENAN [Concomitant]
     Route: 065
  33. VELCADE [Concomitant]
     Route: 065
     Dates: start: 20100902
  34. MOPRIDE [Concomitant]
     Dosage: 15 MILLIGRAM
     Route: 048
  35. NEXIUM [Concomitant]
     Route: 048
  36. CEFAZOLIN SODIUM [Concomitant]
     Route: 041
     Dates: start: 20110407, end: 20110408
  37. CEFTAZIDIME PENTAHYDRATE [Concomitant]
     Dosage: 2000 MILLIGRAM
     Route: 041
     Dates: start: 20110409, end: 20110413
  38. INDERAL [Concomitant]
     Indication: VARICES OESOPHAGEAL
     Dosage: 20 MILLIGRAM
     Route: 048
  39. LACTULOSE [Concomitant]
     Dosage: 20 MILLILITER
     Route: 048
     Dates: start: 20110407
  40. TEICOPLANIN [Concomitant]
     Dosage: 400 MILLIGRAM
     Route: 065
     Dates: start: 20110416
  41. FUROSEMIDE [Concomitant]
     Route: 041
     Dates: start: 20110413, end: 20110414
  42. FILGRASTIM [Concomitant]
     Dosage: 300 MICROGRAM
     Route: 058
     Dates: start: 20110416, end: 20110417
  43. LEVOCETIRIZINE DIHYDROCHLORIDE [Concomitant]
     Dosage: 5 MILLIGRAM
     Route: 048
     Dates: start: 20110425, end: 20110426
  44. VELCADE [Concomitant]
     Route: 065
     Dates: start: 20100708

REACTIONS (9)
  - STREPTOCOCCAL URINARY TRACT INFECTION [None]
  - PANCYTOPENIA [None]
  - JAUNDICE [None]
  - HAEMATURIA [None]
  - FEBRILE NEUTROPENIA [None]
  - INTERSTITIAL LUNG DISEASE [None]
  - LUNG NEOPLASM [None]
  - JAUNDICE CHOLESTATIC [None]
  - PANCREATIC NEOPLASM [None]
